FAERS Safety Report 6237986-9 (Version None)
Quarter: 2009Q2

REPORT INFORMATION
  Report Type: 
  Country: None (occurrence: None)
  Receive Date: 20090617
  Receipt Date: 20090605
  Transmission Date: 20091009
  Serious: No
  Sender: FDA-Public Use
  Company Number: 006713

PATIENT
  Age: 66 Year
  Sex: Female
  Weight: 53 kg

DRUGS (6)
  1. CILOSTAZOL [Suspect]
     Indication: INTERMITTENT CLAUDICATION
     Dosage: 200 MG, DAILY DOSE ORAL
     Route: 048
  2. ASPIRIN [Concomitant]
  3. TICLOPIDINE HCL [Concomitant]
  4. ATORVASTATIN CALCIUM [Concomitant]
  5. OLMESARTAN MEDOXOMIL [Concomitant]
  6. UROKINASE (UROKINASE) [Concomitant]

REACTIONS (2)
  - ANAEMIA [None]
  - VESSEL PUNCTURE SITE HAEMATOMA [None]
